FAERS Safety Report 8495545-1 (Version None)
Quarter: 2012Q3

REPORT INFORMATION
  Report Type: 
  Country: None (occurrence: None)
  Receive Date: 20120709
  Receipt Date: 20120702
  Transmission Date: 20120928
  Serious: Yes (Other)
  Sender: FDA-Public Use
  Company Number: TR-ROCHE-1079530

PATIENT
  Age: 84 Year
  Sex: Female

DRUGS (1)
  1. LUCENTIS [Suspect]
     Indication: AGE-RELATED MACULAR DEGENERATION
     Dosage: THE LAST LUCENTIS INJECTION WAS ON 01 JUN 2012
     Route: 050

REACTIONS (2)
  - BLINDNESS [None]
  - ENDOPHTHALMITIS [None]
